FAERS Safety Report 25490860 (Version 1)
Quarter: 2025Q2

REPORT INFORMATION
  Report Type: Spontaneous
  Country: CN (occurrence: CN)
  Receive Date: 20250627
  Receipt Date: 20250627
  Transmission Date: 20250717
  Serious: Yes (Hospitalization, Disabling)
  Sender: NOVARTIS
  Company Number: CN-002147023-NVSC2025CN100807

PATIENT
  Age: 62 Year
  Sex: Male
  Weight: 60 kg

DRUGS (2)
  1. CARBAMAZEPINE [Suspect]
     Active Substance: CARBAMAZEPINE
     Indication: Headache
     Dosage: 200 MG, BID
     Route: 048
     Dates: start: 20250605, end: 20250618
  2. CELECOXIB [Suspect]
     Active Substance: CELECOXIB
     Indication: Headache
     Dosage: 200 MG, QD
     Route: 048
     Dates: start: 20250605, end: 20250618

REACTIONS (6)
  - Platelet count decreased [Not Recovered/Not Resolved]
  - Fall [Unknown]
  - Headache [Unknown]
  - Haemorrhage [Unknown]
  - Coma [Unknown]
  - Traumatic haemorrhage [Unknown]

NARRATIVE: CASE EVENT DATE: 20250618
